FAERS Safety Report 6304958-5 (Version None)
Quarter: 2009Q3

REPORT INFORMATION
  Report Type: 
  Country: None (occurrence: None)
  Receive Date: 20090806
  Receipt Date: 20090729
  Transmission Date: 20100115
  Serious: No
  Sender: FDA-Public Use
  Company Number: 2009009035

PATIENT
  Sex: Female

DRUGS (3)
  1. FENTORA [Suspect]
     Indication: NERVOUS SYSTEM DISORDER
  2. MS CONTIN [Concomitant]
  3. NORCO [Concomitant]

REACTIONS (2)
  - CONTRAINDICATION TO MEDICAL TREATMENT [None]
  - MEDICATION ERROR [None]
